FAERS Safety Report 21529631 (Version 1)
Quarter: 2022Q4

REPORT INFORMATION
  Report Type: Spontaneous
  Country: US (occurrence: US)
  Receive Date: 20221031
  Receipt Date: 20221031
  Transmission Date: 20230113
  Serious: Yes (Other)
  Sender: FDA-Public Use
  Company Number: US-FreseniusKabi-FK202214674

PATIENT
  Age: 72 Year
  Sex: Male

DRUGS (8)
  1. DEXAMETHASONE [Suspect]
     Active Substance: DEXAMETHASONE
     Indication: Septic shock
     Route: 065
  2. HYDROCORTISONE [Suspect]
     Active Substance: HYDROCORTISONE
     Indication: Septic shock
     Route: 065
  3. HYDROCORTISONE [Suspect]
     Active Substance: HYDROCORTISONE
     Dosage: TAPERING FROM A TOTAL DOSE OF 25?200 MG PER DAY
     Route: 065
  4. PREDNISONE [Suspect]
     Active Substance: PREDNISONE
     Indication: Septic shock
     Dosage: TO COMPLETE A PROLONGED TAPER OVER 2 MONTHS FOLLOWING THIS LAST DISCHARGE
     Route: 065
  5. NIVOLUMAB [Concomitant]
     Active Substance: NIVOLUMAB
     Indication: Chemotherapy
     Route: 065
  6. UNSPECIFIED INGREDIENT [Concomitant]
     Active Substance: UNSPECIFIED INGREDIENT
     Indication: Sepsis
     Route: 065
  7. FLUOROURACIL\LEUCOVORIN CALCIUM\OXALIPLATIN [Concomitant]
     Active Substance: FLUOROURACIL\LEUCOVORIN CALCIUM\OXALIPLATIN
     Indication: Chemotherapy
     Route: 065
  8. CV301 [Concomitant]
     Indication: Product used for unknown indication
     Route: 065

REACTIONS (1)
  - Adrenal insufficiency [Recovered/Resolved]
